FAERS Safety Report 6879856-9 (Version None)
Quarter: 2010Q3

REPORT INFORMATION
  Report Type: 
  Country: None (occurrence: None)
  Receive Date: 20100728
  Receipt Date: 20100714
  Transmission Date: 20110219
  Serious: Yes (Other)
  Sender: FDA-Public Use
  Company Number: PHHY2010US46867

PATIENT
  Age: 36 Year
  Sex: Female

DRUGS (1)
  1. ESTRADIOL [Suspect]
     Indication: HORMONE THERAPY
     Dosage: 0.1 MG, QW2
     Route: 062

REACTIONS (4)
  - BRAIN TUMOUR OPERATION [None]
  - CONVULSION [None]
  - HEADACHE [None]
  - MENINGIOMA [None]
